FAERS Safety Report 21953168 (Version 1)
Quarter: 2023Q1

REPORT INFORMATION
  Report Type: Report from Study
  Country: US (occurrence: US)
  Receive Date: 20230204
  Receipt Date: 20230204
  Transmission Date: 20230417
  Serious: Yes (Life-Threatening, Hospitalization, Other)
  Sender: FDA-Public Use
  Company Number: US-002147023-NVSC2023US022831

PATIENT
  Age: 67 Year
  Sex: Male

DRUGS (1)
  1. ENTRESTO [Suspect]
     Active Substance: SACUBITRIL\VALSARTAN
     Indication: Product used for unknown indication
     Dosage: 1 DOSAGE FORM, BID (24/26 MG)
     Route: 048
     Dates: start: 2018

REACTIONS (5)
  - Cardiac arrest [Recovered/Resolved]
  - Atrial fibrillation [Recovered/Resolved]
  - Heart rate abnormal [Recovered/Resolved]
  - Heart rate increased [Not Recovered/Not Resolved]
  - Dyspnoea [Recovered/Resolved]

NARRATIVE: CASE EVENT DATE: 20220301
